FAERS Safety Report 5978103-X (Version None)
Quarter: 2008Q4

REPORT INFORMATION
  Report Type: 
  Country: None (occurrence: None)
  Receive Date: 20081204
  Receipt Date: 20081125
  Transmission Date: 20090506
  Serious: Yes (Other)
  Sender: FDA-Public Use
  Company Number: GB-RANBAXY-2008RR-19536

PATIENT
  Age: 52 Year
  Sex: Female

DRUGS (4)
  1. METFORMIN HCL [Suspect]
     Indication: DRUG USE FOR UNKNOWN INDICATION
     Route: 065
  2. ROSIGLITAZONE MALEATE [Suspect]
     Indication: DRUG USE FOR UNKNOWN INDICATION
     Route: 065
  3. EXENATIDE [Concomitant]
     Indication: TYPE 2 DIABETES MELLITUS
  4. EXENATIDE [Concomitant]
     Indication: WEIGHT DECREASED

REACTIONS (1)
  - DIABETES MELLITUS INADEQUATE CONTROL [None]
